FAERS Safety Report 8103792-3 (Version None)
Quarter: 2012Q1

REPORT INFORMATION
  Report Type: 
  Country: None (occurrence: None)
  Receive Date: 20120201
  Receipt Date: 20120124
  Transmission Date: 20120608
  Serious: Yes (Death, Other)
  Sender: FDA-Public Use
  Company Number: US-ROXANE LABORATORIES, INC.-2012-RO-00532RO

PATIENT
  Age: 44 Year
  Sex: Male

DRUGS (11)
  1. MORPHINE [Suspect]
     Indication: PAIN
     Dosage: 400 MG
     Route: 048
  2. BUPIVACAINE HCL [Suspect]
     Indication: PAIN
     Dosage: 2.5 MG
     Route: 037
  3. GABAPENTIN [Suspect]
     Indication: PAIN
     Dosage: 3 G
  4. FENTANYL CITRATE [Suspect]
     Indication: PAIN
     Dosage: 1200 MCG
  5. LEVOBUPIVACAINE [Suspect]
     Indication: PAIN
  6. PREGABALIN [Suspect]
     Indication: PAIN
     Dosage: 150 MG
  7. MORPHINE [Suspect]
     Dosage: 0.5 MG
     Route: 037
  8. FENTANYL CITRATE [Suspect]
     Indication: BREAKTHROUGH PAIN
  9. MORPHINE [Suspect]
     Dosage: 2 MG
     Route: 037
  10. DEXAMETHASONE [Suspect]
     Indication: PAIN
     Dosage: 8 MG
  11. DICLOFENAC SODIUM [Suspect]
     Indication: PAIN
     Dosage: 100 MG

REACTIONS (2)
  - PAIN [None]
  - DEATH [None]
